FAERS Safety Report 21846111 (Version 1)
Quarter: 2023Q1

REPORT INFORMATION
  Report Type: Spontaneous
  Country: CN (occurrence: None)
  Receive Date: 20230111
  Receipt Date: 20230111
  Transmission Date: 20230418
  Serious: Yes (Other)
  Sender: FDA-Public Use
  Company Number: CN-ROCHE-3259874

PATIENT
  Age: 48 Year
  Sex: Female

DRUGS (17)
  1. HERCEPTIN [Suspect]
     Active Substance: TRASTUZUMAB
     Indication: Invasive ductal breast carcinoma
     Dosage: DOSE SEQUENCES:29/SEP/2022, 19/OCT/2022
     Route: 041
     Dates: start: 2022
  2. PIRARUBICIN [Concomitant]
     Active Substance: PIRARUBICIN
     Dosage: 17-AUG-2017, 09-SEP-2017, 30-SEP-2017, 20-OCT-2017, 13-NOV-2017, 04-DEC-2017
  3. CYCLOPHOSPHAMIDE [Concomitant]
     Active Substance: CYCLOPHOSPHAMIDE
     Dosage: 17-AUG-2017, 09-SEP-2017, 30-SEP-2017, 20-OCT-2017, 13-NOV-2017, 04-DEC-2017
  4. DOCETAXEL [Concomitant]
     Active Substance: DOCETAXEL
     Dosage: 17-AUG-2017, 09-SEP-2017, 30-SEP-2017, 20-OCT-2017, 13-NOV-2017, 04-DEC-2017
  5. ZOLEDRONIC ACID [Concomitant]
     Active Substance: ZOLEDRONIC ACID
     Indication: Bone operation
     Dates: start: 2017
  6. PAMIDRONATE DISODIUM [Concomitant]
     Active Substance: PAMIDRONATE DISODIUM
     Indication: Bone operation
     Dates: start: 2018
  7. TAMOXIFEN [Concomitant]
     Active Substance: TAMOXIFEN
     Dates: start: 2018
  8. GOSERELIN [Concomitant]
     Active Substance: GOSERELIN
     Route: 058
     Dates: start: 20180326
  9. GOSERELIN [Concomitant]
     Active Substance: GOSERELIN
     Route: 058
     Dates: start: 20190819
  10. LETROZOLE [Concomitant]
     Active Substance: LETROZOLE
     Dates: start: 20180326
  11. FULVESTRANT [Concomitant]
     Active Substance: FULVESTRANT
     Route: 030
     Dates: start: 20190819
  12. PYROTINIB [Concomitant]
     Active Substance: PYROTINIB
     Dates: start: 20211011
  13. PYROTINIB [Concomitant]
     Active Substance: PYROTINIB
     Dates: start: 20221019
  14. CAPECITABINE [Concomitant]
     Active Substance: CAPECITABINE
     Dates: start: 20211011
  15. CAPECITABINE [Concomitant]
     Active Substance: CAPECITABINE
     Dates: start: 2022
  16. CAPECITABINE [Concomitant]
     Active Substance: CAPECITABINE
     Dates: start: 20220929
  17. VINORELBINE [Concomitant]
     Active Substance: VINORELBINE TARTRATE
     Dates: start: 20221019

REACTIONS (3)
  - Myelosuppression [Recovering/Resolving]
  - Pyrexia [Recovering/Resolving]
  - COVID-19 [Unknown]

NARRATIVE: CASE EVENT DATE: 20220101
